FAERS Safety Report 5483672-2 (Version None)
Quarter: 2007Q4

REPORT INFORMATION
  Report Type: 
  Country: None (occurrence: None)
  Receive Date: 20071012
  Receipt Date: 20071003
  Transmission Date: 20080405
  Serious: Yes (Hospitalization)
  Sender: FDA-Public Use
  Company Number: US-ELI_LILLY_AND_COMPANY-US200710002040

PATIENT
  Sex: Male
  Weight: 136.5 kg

DRUGS (10)
  1. EXENATIDE [Suspect]
     Indication: DIABETES MELLITUS
     Dosage: 10 UG, 2/D
     Route: 058
     Dates: start: 20050101
  2. ENALAPRIL MALEATE [Concomitant]
  3. FUROSEMIDE [Concomitant]
  4. REQUIP [Concomitant]
  5. SIMVASTATIN [Concomitant]
  6. TRICOR [Concomitant]
  7. HUMATROPE [Concomitant]
  8. HUMALOG [Concomitant]
     Indication: DIABETES MELLITUS
  9. METFORMIN HCL [Concomitant]
     Indication: DIABETES MELLITUS
     Dosage: 500 MG, 3/D
     Route: 048
  10. LANTUS [Concomitant]
     Indication: DIABETES MELLITUS
     Dosage: 150 MG, DAILY (1/D)
     Route: 058

REACTIONS (11)
  - BLOOD GLUCOSE ABNORMAL [None]
  - CEREBROVASCULAR ACCIDENT [None]
  - COGNITIVE DISORDER [None]
  - DIZZINESS [None]
  - FALL [None]
  - LOSS OF CONSCIOUSNESS [None]
  - MUSCULOSKELETAL DISCOMFORT [None]
  - NAUSEA [None]
  - STAPHYLOCOCCAL INFECTION [None]
  - VERTIGO [None]
  - VOMITING [None]
